FAERS Safety Report 11827531 (Version 1)
Quarter: 2015Q4

REPORT INFORMATION
  Report Type: Spontaneous
  Country: IL (occurrence: IL)
  Receive Date: 20151211
  Receipt Date: 20151211
  Transmission Date: 20160305
  Serious: Yes (Hospitalization, Other)
  Sender: FDA-Public Use
  Company Number: IL-CELGENE-ISR-2015118137

PATIENT
  Age: 68 Year
  Sex: Male

DRUGS (1)
  1. REVLIMID [Suspect]
     Active Substance: LENALIDOMIDE
     Indication: PLASMA CELL MYELOMA
     Route: 048
     Dates: start: 20150816, end: 20151126

REACTIONS (2)
  - Urinary tract obstruction [Not Recovered/Not Resolved]
  - Postrenal failure [Not Recovered/Not Resolved]

NARRATIVE: CASE EVENT DATE: 20151125
